FAERS Safety Report 8529387 (Version 5)
Quarter: 2012Q4

REPORT INFORMATION
  Report Type: Report from Study
  Country: US (occurrence: US)
  Receive Date: 20120425
  Receipt Date: 20121004
  Transmission Date: 20130627
  Serious: Yes (Death)
  Sender: FDA-Public Use
  Company Number: US-SANOFI-AVENTIS-2012SA028094

PATIENT
  Age: 63 Year
  Sex: Female
  Weight: 71 kg

DRUGS (16)
  1. DOCETAXEL [Suspect]
     Indication: MALIGNANT BREAST NEOPLASM
     Dosage: form:vial;Dose level 75 mg/m2
     Route: 042
     Dates: start: 20090317, end: 20090327
  2. TRASTUZUMAB [Suspect]
     Indication: MALIGNANT BREAST NEOPLASM
     Dosage: forms: vial;Dose level 8 mg/kg
     Route: 042
     Dates: start: 20090317, end: 20090327
  3. CARBOPLATIN [Suspect]
     Indication: MALIGNANT BREAST NEOPLASM
     Dosage: dose level: 6 AUC;form: vial
     Route: 042
     Dates: start: 20090317, end: 20090327
  4. BEVACIZUMAB [Suspect]
     Indication: MALIGNANT BREAST NEOPLASM
     Dosage: dose level 15 mg/kg;form:vial
     Route: 042
     Dates: start: 20090317, end: 20090327
  5. SUMATRIPTAN [Concomitant]
  6. PROPRANOLOL HYDROCHLORIDE [Concomitant]
     Indication: HYPERTENSION
  7. PROPRANOLOL HYDROCHLORIDE [Concomitant]
     Indication: MIGRAINE
  8. ZANTAC [Concomitant]
  9. ALLEGRA [Concomitant]
  10. FIORICET [Concomitant]
  11. TYLENOL [Concomitant]
  12. DONNATAL [Concomitant]
  13. ADVAIR [Concomitant]
  14. RETIN-A [Concomitant]
  15. CLINDAMYCIN [Concomitant]
  16. ELAVIL [Concomitant]
     Indication: MIGRAINE

REACTIONS (1)
  - Neutropenic sepsis [Fatal]
